FAERS Safety Report 8780472 (Version 1)
Quarter: 2012Q4

REPORT INFORMATION
  Report Type: Spontaneous
  Country: US (occurrence: None)
  Receive Date: 20120906
  Receipt Date: 20120906
  Transmission Date: 20130627
  Serious: No
  Sender: FDA-Public Use
  Company Number: None

PATIENT
  Age: 23 Year
  Sex: Female

DRUGS (4)
  1. CLOZAPINE [Suspect]
     Dosage: Q AM- in morning
  2. CLOZAPINE [Suspect]
     Indication: AGGRESSION
     Dosage: Q AM- in morning
  3. CLOZAPINE [Suspect]
     Dosage: 100 MG Q HS
  4. CLOZAPINE [Suspect]
     Indication: AGGRESSION
     Dosage: 100 MG Q HS

REACTIONS (1)
  - Neutrophil count decreased [None]
